FAERS Safety Report 13528639 (Version 2)
Quarter: 2017Q2

REPORT INFORMATION
  Report Type: Report from Study
  Country: US (occurrence: US)
  Receive Date: 20170509
  Receipt Date: 20170621
  Transmission Date: 20170830
  Serious: No
  Sender: FDA-Public Use
  Company Number: US-009507513-1705USA001007

PATIENT
  Age: 17 Year
  Sex: Female
  Weight: 43.99 kg

DRUGS (1)
  1. IMPLANON [Suspect]
     Active Substance: ETONOGESTREL
     Indication: MENSTRUAL CYCLE MANAGEMENT
     Dosage: 1 DF, UNK
     Route: 059
     Dates: start: 20170501

REACTIONS (3)
  - Implant site hypoaesthesia [Not Recovered/Not Resolved]
  - Product use in unapproved indication [Unknown]
  - Hypoaesthesia [Not Recovered/Not Resolved]

NARRATIVE: CASE EVENT DATE: 20170501
